FAERS Safety Report 25905093 (Version 1)
Quarter: 2025Q4

REPORT INFORMATION
  Report Type: Spontaneous
  Country: US (occurrence: US)
  Receive Date: 20251010
  Receipt Date: 20251010
  Transmission Date: 20260117
  Serious: No
  Sender: Kenvue
  Company Number: US-KENVUE-20250810063

PATIENT
  Sex: Female

DRUGS (3)
  1. IMODIUM MULTI-SYMPTOM RELIEF [Suspect]
     Active Substance: DIMETHICONE\LOPERAMIDE HYDROCHLORIDE
     Indication: Diarrhoea
     Dosage: 1 DOSAGE FORM 2 TIMES A WEEKS
     Route: 065
     Dates: start: 202501
  2. unspecified cancer pills [Concomitant]
     Indication: Neoplasm malignant
     Route: 065
  3. IMODIUM A-D [Suspect]
     Active Substance: LOPERAMIDE HYDROCHLORIDE
     Indication: Diarrhoea
     Dosage: 1 DOSAGE FORM TWO TIMES A WEEK
     Route: 065
     Dates: start: 2025

REACTIONS (1)
  - Incorrect dose administered [Unknown]
